FAERS Safety Report 7933994-8 (Version None)
Quarter: 2011Q4

REPORT INFORMATION
  Report Type: 
  Country: None (occurrence: None)
  Receive Date: 20111122
  Receipt Date: 20111111
  Transmission Date: 20120403
  Serious: Yes (Hospitalization)
  Sender: FDA-Public Use
  Company Number: JP-ELI_LILLY_AND_COMPANY-JP201111003963

PATIENT
  Sex: Female

DRUGS (3)
  1. ZYPREXA [Suspect]
     Dosage: 5 MG, QD
     Route: 048
     Dates: start: 20110101
  2. ZYPREXA [Suspect]
     Indication: DELUSIONAL DISORDER, JEALOUS TYPE
     Dosage: UNK
     Route: 048
     Dates: start: 20110701, end: 20111001
  3. ZOLOFT [Concomitant]
     Dosage: UNK
     Route: 048
     Dates: start: 20060101, end: 20111001

REACTIONS (1)
  - PULMONARY EMBOLISM [None]
